FAERS Safety Report 6186003-8 (Version None)
Quarter: 2009Q2

REPORT INFORMATION
  Report Type: 
  Country: None (occurrence: None)
  Receive Date: 20090507
  Receipt Date: 20090427
  Transmission Date: 20091009
  Serious: Yes (Other)
  Sender: FDA-Public Use
  Company Number: 2009AP001704

PATIENT
  Age: 51 Year
  Sex: Male

DRUGS (4)
  1. SELEGILINE HCL [Suspect]
     Indication: PARKINSON'S DISEASE
     Dosage: 5 MG;BID
  2. MIRAPEX [Suspect]
     Indication: PARKINSON'S DISEASE
     Dosage: 1.25 MG;TID; 1.5 MG;TID;
  3. BUPROPION HCL [Concomitant]
  4. TRAZODONE HCL [Concomitant]

REACTIONS (8)
  - ANXIETY [None]
  - BRADYKINESIA [None]
  - DEPRESSION [None]
  - HYPERSEXUALITY [None]
  - MUSCLE RIGIDITY [None]
  - OBSESSIVE-COMPULSIVE DISORDER [None]
  - PARAPHILIA [None]
  - STEREOTYPY [None]
